FAERS Safety Report 6611022-4 (Version None)
Quarter: 2010Q1

REPORT INFORMATION
  Report Type: 
  Country: None (occurrence: None)
  Receive Date: 20100222
  Receipt Date: 20100209
  Transmission Date: 20100710
  Serious: Yes (Hospitalization)
  Sender: FDA-Public Use
  Company Number: MSTR-NO-1002S-0071

PATIENT
  Age: 69 Year
  Sex: Male
  Weight: 51 kg

DRUGS (2)
  1. METASTRON [Suspect]
     Indication: METASTATIC PAIN
     Dosage: , SINGLE DOSE, I.V.
     Dates: start: 20090820, end: 20090820
  2. TS-1 [Suspect]
     Indication: DRUG USE FOR UNKNOWN INDICATION

REACTIONS (3)
  - BONE MARROW FAILURE [None]
  - DECREASED APPETITE [None]
  - PYREXIA [None]
